FAERS Safety Report 8093038-7 (Version None)
Quarter: 2012Q1

REPORT INFORMATION
  Report Type: 
  Country: None (occurrence: None)
  Receive Date: 20120128
  Receipt Date: 20111019
  Transmission Date: 20120608
  Serious: No
  Sender: FDA-Public Use
  Company Number: US-ABBOTT-10P-163-0686030-00

PATIENT
  Sex: Female
  Weight: 119.86 kg

DRUGS (11)
  1. ZANTAC [Concomitant]
     Indication: GASTROOESOPHAGEAL REFLUX DISEASE
     Route: 048
  2. HUMIRA [Suspect]
  3. MULTI-VITAMINS [Concomitant]
     Indication: VITAMIN SUPPLEMENTATION
     Dosage: DAILY
  4. NITROFURANTOIN MONOHYDRATE/MACROCRYSTALS [Concomitant]
     Indication: CYSTITIS
     Dosage: DAILY
  5. GABAPENTIN [Concomitant]
     Indication: PRODUCT USED FOR UNKNOWN INDICATION
     Dosage: TID
  6. HUMIRA [Suspect]
     Indication: CROHN'S DISEASE
     Dates: start: 20100701
  7. METHOCARBINOL [Concomitant]
     Indication: MUSCLE SPASMS
     Dosage: QID
  8. MULTIVITAMINS WITH IRON [Concomitant]
     Indication: PRODUCT USED FOR UNKNOWN INDICATION
  9. LISINOPRIL [Concomitant]
     Indication: HYPERTENSION
     Route: 048
  10. TOPAMAX [Concomitant]
     Indication: MIGRAINE
     Route: 048
     Dates: start: 20070101
  11. VICODIN [Concomitant]
     Indication: PAIN
     Dosage: 5/500MG EVERY 6 PRN

REACTIONS (16)
  - PARAESTHESIA [None]
  - SKIN LESION [None]
  - INJECTION SITE PAIN [None]
  - RASH [None]
  - INJECTION SITE EXTRAVASATION [None]
  - BURNING SENSATION [None]
  - DIARRHOEA [None]
  - DEVICE MALFUNCTION [None]
  - RASH GENERALISED [None]
  - DYSGEUSIA [None]
  - MYALGIA [None]
  - PHOTOSENSITIVITY REACTION [None]
  - INJECTION SITE NODULE [None]
  - VOMITING [None]
  - GASTROINTESTINAL PAIN [None]
  - BONE PAIN [None]
